FAERS Safety Report 9170115 (Version 1)
Quarter: 2013Q1

REPORT INFORMATION
  Report Type: Spontaneous
  Country: US (occurrence: None)
  Receive Date: 20130314
  Receipt Date: 20130314
  Transmission Date: 20140127
  Serious: No
  Sender: FDA-Public Use
  Company Number: None

PATIENT
  Age: 33 Year
  Sex: Female
  Weight: 77.11 kg

DRUGS (1)
  1. SERTRALINE [Suspect]
     Indication: AFFECTIVE DISORDER
     Dosage: 1 TABLET ONCE PER DAY PO
     Route: 048

REACTIONS (4)
  - Influenza like illness [None]
  - Dizziness [None]
  - Irritability [None]
  - Headache [None]
